FAERS Safety Report 7137801-5 (Version None)
Quarter: 2010Q4

REPORT INFORMATION
  Report Type: 
  Country: None (occurrence: None)
  Receive Date: 20101103
  Receipt Date: 20100412
  Transmission Date: 20110411
  Serious: Yes (Hospitalization)
  Sender: FDA-Public Use
  Company Number: 2010S1000191

PATIENT
  Age: 79 Year
  Sex: Male

DRUGS (12)
  1. CUBICIN [Suspect]
     Indication: INTERVERTEBRAL DISCITIS
     Dosage: 4 MG/KG;Q48H;IV
     Route: 042
     Dates: start: 20091229, end: 20100126
  2. ELMIRON [Concomitant]
  3. ARANESP [Concomitant]
  4. INSULIN HUMALOG MIX [Concomitant]
  5. . [Concomitant]
  6. HUMULIN /01040301/ [Concomitant]
  7. NEXIUM [Concomitant]
  8. IRON [Concomitant]
  9. SALBUTAMOL [Concomitant]
  10. FUROSEMIDE [Concomitant]
  11. DILTIAZEM [Concomitant]
  12. VANCOMYCIN [Concomitant]

REACTIONS (1)
  - ANAEMIA [None]
